FAERS Safety Report 9650520 (Version 4)
Quarter: 2014Q1

REPORT INFORMATION
  Report Type: Report from Study
  Country: AU (occurrence: AU)
  Receive Date: 20131029
  Receipt Date: 20140118
  Transmission Date: 20141002
  Serious: Yes (Hospitalization)
  Sender: FDA-Public Use
  Company Number: AU-ROCHE-1295322

PATIENT
  Age: 73 Year
  Sex: Male

DRUGS (28)
  1. RITUXIMAB [Suspect]
     Indication: CHRONIC LYMPHOCYTIC LEUKAEMIA
     Route: 042
     Dates: start: 20130813, end: 20130813
  2. RITUXIMAB [Suspect]
     Route: 042
     Dates: start: 20130912
  3. ABT-199 [Suspect]
     Indication: CHRONIC LYMPHOCYTIC LEUKAEMIA
     Route: 048
     Dates: start: 20130709, end: 20130715
  4. ABT-199 [Suspect]
     Route: 048
     Dates: start: 20130716, end: 20130722
  5. ABT-199 [Suspect]
     Route: 048
     Dates: start: 20130723, end: 20130729
  6. ABT-199 [Suspect]
     Route: 048
     Dates: start: 20130730, end: 20130805
  7. ABT-199 [Suspect]
     Route: 048
     Dates: start: 20130806
  8. ALLOPURINOL [Concomitant]
     Indication: PROPHYLAXIS
     Route: 048
     Dates: start: 20130625, end: 20131017
  9. NEXIUM [Concomitant]
     Indication: GASTRITIS
     Route: 065
     Dates: start: 20130617
  10. COD LIVER OIL [Concomitant]
     Route: 065
     Dates: start: 2010
  11. BIO C [Concomitant]
     Route: 065
     Dates: start: 201304
  12. ASPIRIN [Concomitant]
     Indication: PERIPHERAL VASCULAR DISORDER
     Route: 048
     Dates: start: 201301, end: 20131021
  13. ASPIRIN [Concomitant]
     Route: 048
     Dates: start: 20131027
  14. CRESTOR [Concomitant]
     Indication: HYPERCHOLESTEROLAEMIA
     Route: 065
     Dates: start: 2010, end: 20131220
  15. CRESTOR [Concomitant]
     Route: 065
     Dates: start: 20140103
  16. CIALIS [Concomitant]
     Indication: ERECTILE DYSFUNCTION
     Route: 065
     Dates: start: 2010
  17. ACICLOVIR [Concomitant]
     Route: 065
     Dates: start: 20130625
  18. CETIRIZINE [Concomitant]
     Route: 065
     Dates: start: 20130813, end: 20140103
  19. HYDROCORTISONE [Concomitant]
     Route: 042
     Dates: start: 20130813, end: 20140103
  20. PARACETAMOL [Concomitant]
     Route: 048
     Dates: start: 20130813, end: 20140103
  21. ALUTABS [Concomitant]
     Indication: PROPHYLAXIS
     Route: 065
     Dates: start: 20130709, end: 20130810
  22. CALTRATE [Concomitant]
     Indication: PROPHYLAXIS
     Route: 065
     Dates: start: 20130709, end: 20130717
  23. RASBURICASE [Concomitant]
     Indication: PROPHYLAXIS
     Route: 065
     Dates: start: 20130709, end: 20130806
  24. RESONIUM [Concomitant]
     Indication: PROPHYLAXIS
     Route: 065
     Dates: start: 20130709, end: 20130716
  25. AUGMENTIN DUO FORTE [Concomitant]
     Indication: LOWER RESPIRATORY TRACT INFECTION
     Dosage: 1 TABLET
     Route: 048
     Dates: start: 20130813, end: 20130818
  26. AUGMENTIN DUO FORTE [Concomitant]
     Dosage: 1 TABLET
     Route: 048
     Dates: start: 20131225, end: 20131228
  27. RULIDE [Concomitant]
     Route: 048
     Dates: start: 20130813, end: 20130818
  28. ALTEPLASE [Concomitant]
     Route: 065
     Dates: start: 20130806, end: 20130806

REACTIONS (1)
  - Pulmonary mass [Recovered/Resolved]
